FAERS Safety Report 4806684-8 (Version None)
Quarter: 2005Q4

REPORT INFORMATION
  Report Type: 
  Country: None (occurrence: None)
  Receive Date: 20051019
  Receipt Date: 20051003
  Transmission Date: 20060501
  Serious: Yes (Other)
  Sender: FDA-Public Use
  Company Number: USA0510109746

PATIENT
  Age: 75 Year
  Sex: Female

DRUGS (2)
  1. HUMALOG [Suspect]
  2. HUMULIN 70/30 [Suspect]

REACTIONS (4)
  - CATARACT [None]
  - EYE HAEMORRHAGE [None]
  - NEOVASCULARISATION [None]
  - SURGICAL PROCEDURE REPEATED [None]
